FAERS Safety Report 17441094 (Version 1)
Quarter: 2020Q1

REPORT INFORMATION
  Report Type: Spontaneous
  Country: US (occurrence: US)
  Receive Date: 20200220
  Receipt Date: 20200220
  Transmission Date: 20200409
  Serious: No
  Sender: FDA-Public Use
  Company Number: US-LEXICON PHARMACEUTICALS, INC-20-1606-00120

PATIENT
  Sex: Male

DRUGS (11)
  1. PROCHLORPERAZINE. [Concomitant]
     Active Substance: PROCHLORPERAZINE
  2. XANAX [Concomitant]
     Active Substance: ALPRAZOLAM
  3. TAMSULOSIN [Concomitant]
     Active Substance: TAMSULOSIN
  4. DULOXETINE. [Concomitant]
     Active Substance: DULOXETINE
  5. FENTANYL. [Concomitant]
     Active Substance: FENTANYL
  6. XERMELO [Suspect]
     Active Substance: TELOTRISTAT ETHYL
     Indication: CARCINOID TUMOUR
  7. CHLORTHALIDONE. [Concomitant]
     Active Substance: CHLORTHALIDONE
  8. BUSPAR [Concomitant]
     Active Substance: BUSPIRONE HYDROCHLORIDE
  9. OCTREOTIDE. [Concomitant]
     Active Substance: OCTREOTIDE
  10. HYDRALAZINE [Concomitant]
     Active Substance: HYDRALAZINE HYDROCHLORIDE
  11. CARVEDILOL. [Concomitant]
     Active Substance: CARVEDILOL

REACTIONS (1)
  - Gallbladder disorder [Unknown]
